FAERS Safety Report 7122740-6 (Version None)
Quarter: 2010Q4

REPORT INFORMATION
  Report Type: 
  Country: None (occurrence: None)
  Receive Date: 20101124
  Receipt Date: 20101117
  Transmission Date: 20110411
  Serious: Yes (Other)
  Sender: FDA-Public Use
  Company Number: US-PFIZER INC-US-WYE-H18489610

PATIENT
  Sex: Female

DRUGS (3)
  1. EFFEXOR XR [Suspect]
     Indication: BIPOLAR DISORDER
     Dosage: UNK
  2. EFFEXOR XR [Suspect]
     Indication: OFF LABEL USE
  3. LAMICTAL [Concomitant]
     Dosage: 100MG IN THE MORNING AND 200MG AT BEDTIME

REACTIONS (4)
  - AGITATION [None]
  - BIPOLAR DISORDER [None]
  - FEELING ABNORMAL [None]
  - MALAISE [None]
